FAERS Safety Report 19644187 (Version 3)
Quarter: 2021Q4

REPORT INFORMATION
  Report Type: Report from Study
  Country: US (occurrence: US)
  Receive Date: 20210801
  Receipt Date: 20211027
  Transmission Date: 20220303
  Serious: No
  Sender: FDA-Public Use
  Company Number: NVSC2021US167237

PATIENT
  Age: 60 Year
  Sex: Male

DRUGS (1)
  1. ENTRESTO [Suspect]
     Active Substance: SACUBITRIL\VALSARTAN
     Indication: Cardiac failure chronic
     Dosage: 1 DF, UNKNOWN
     Route: 048
     Dates: start: 20210620

REACTIONS (5)
  - Weight decreased [Recovered/Resolved]
  - Psychomotor hyperactivity [Unknown]
  - Exercise tolerance decreased [Unknown]
  - Heart rate increased [Unknown]
  - Weight decreased [Unknown]

NARRATIVE: CASE EVENT DATE: 20210701
